FAERS Safety Report 5981284-5 (Version None)
Quarter: 2008Q4

REPORT INFORMATION
  Report Type: 
  Country: None (occurrence: None)
  Receive Date: 20081126
  Receipt Date: 20081110
  Transmission Date: 20090506
  Serious: Yes (Hospitalization)
  Sender: FDA-Public Use
  Company Number: DSA_32623_2008

PATIENT
  Sex: Female

DRUGS (3)
  1. LORAZEPAM [Suspect]
     Dosage: 100 DF 1X NOT THE PRESCRIBED AMOUNT. ORAL
     Route: 048
     Dates: start: 20081102, end: 20081102
  2. CITALOPRAM HYDROBROMIDE [Suspect]
     Dosage: 60 DF 1X NOT THE PRESCRIBED AMOUNT. ORAL
     Route: 048
  3. KATADOLON /00890102/ (KATADOLON-FLUPIRTINE MALEATE) (NOT SPECIFIED) [Suspect]
     Dosage: 20 DF 1X, NOT THE PRESCRIBED AMOUNT
     Dates: start: 20081102, end: 20081102

REACTIONS (6)
  - ASPIRATION [None]
  - MULTIPLE DRUG OVERDOSE INTENTIONAL [None]
  - SOPOR [None]
  - SUICIDE ATTEMPT [None]
  - TACHYCARDIA [None]
  - VOMITING [None]
